FAERS Safety Report 10670447 (Version 3)
Quarter: 2015Q1

REPORT INFORMATION
  Report Type: Spontaneous
  Country: JP (occurrence: None)
  Receive Date: 20141218
  Receipt Date: 20150109
  Transmission Date: 20150720
  Serious: Yes (Other)
  Sender: FDA-Public Use
  Company Number: SP08704

PATIENT
  Age: 94 Year
  Sex: Female

DRUGS (8)
  1. CYTOTEC [Concomitant]
     Active Substance: MISOPROSTOL
  2. SEROQUEL [Concomitant]
     Active Substance: QUETIAPINE FUMARATE
  3. MOVIPREP [Suspect]
     Active Substance: ASCORBIC ACID\POLYETHYLENE GLYCOL 3350\POTASSIUM CHLORIDE\SODIUM ASCORBATE\SODIUM CHLORIDE\SODIUM SULFATE
     Indication: BOWEL PREPARATION
     Dosage: 1.5  LIT,
     Route: 048
     Dates: start: 20141125, end: 20141125
  4. ITOROL [Concomitant]
     Active Substance: ISOSORBIDE MONONITRATE
  5. MYSLEE [Concomitant]
     Active Substance: ZOLPIDEM TARTRATE
  6. RISPERDAL [Concomitant]
     Active Substance: RISPERIDONE
  7. NEXIUM [Concomitant]
     Active Substance: ESOMEPRAZOLE MAGNESIUM
  8. ARICEPT [Concomitant]
     Active Substance: DONEPEZIL HYDROCHLORIDE

REACTIONS (5)
  - Tachycardia [None]
  - Blood pressure decreased [None]
  - Atrial fibrillation [None]
  - Arrhythmia [None]
  - Hypovolaemia [None]

NARRATIVE: CASE EVENT DATE: 20141126
